FAERS Safety Report 7624161-6 (Version None)
Quarter: 2011Q3

REPORT INFORMATION
  Report Type: 
  Country: None (occurrence: None)
  Receive Date: 20110720
  Receipt Date: 20110720
  Transmission Date: 20111222
  Serious: Yes (Hospitalization, Disabling)
  Sender: FDA-Public Use
  Company Number: None

PATIENT
  Age: 77 Year
  Sex: Female
  Weight: 66.678 kg

DRUGS (3)
  1. DABIGITRAN [Suspect]
  2. INDOMETHACIN [Interacting]
  3. ASPIRIN [Interacting]

REACTIONS (1)
  - GASTROINTESTINAL HAEMORRHAGE [None]
